FAERS Safety Report 6045382-2 (Version None)
Quarter: 2009Q1

REPORT INFORMATION
  Report Type: 
  Country: None (occurrence: None)
  Receive Date: 20090121
  Receipt Date: 20090113
  Transmission Date: 20090719
  Serious: Yes (Hospitalization)
  Sender: FDA-Public Use
  Company Number: US-BAYER-200814506BCC

PATIENT
  Age: 46 Year
  Sex: Male
  Weight: 122 kg

DRUGS (11)
  1. ASPIRIN [Suspect]
     Indication: CARDIAC DISORDER
     Dosage: TOTAL DAILY DOSE: 81  MG  UNIT DOSE: 81 MG
     Dates: start: 20070701, end: 20070901
  2. PREDNISONE [Concomitant]
  3. COUMADIN [Concomitant]
  4. PROTONIX [Concomitant]
  5. LIPITOR [Concomitant]
  6. PHOSLO [Concomitant]
  7. LANTUS [Concomitant]
  8. NEPHRO VITE [Concomitant]
  9. ATENOLOL [Concomitant]
  10. SYNTHROID [Concomitant]
  11. LYRICA [Concomitant]

REACTIONS (3)
  - GASTROINTESTINAL HAEMORRHAGE [None]
  - HYPERSENSITIVITY [None]
  - ULCER HAEMORRHAGE [None]
